FAERS Safety Report 24828731 (Version 1)
Quarter: 2025Q1

REPORT INFORMATION
  Report Type: Spontaneous
  Country: US (occurrence: US)
  Receive Date: 20250110
  Receipt Date: 20250110
  Transmission Date: 20250409
  Serious: No
  Sender: SANOFI AVENTIS
  Company Number: US-SA-2025SA006908

PATIENT
  Sex: Male

DRUGS (1)
  1. DUPIXENT [Suspect]
     Active Substance: DUPILUMAB
     Indication: Dermatitis allergic
     Dosage: 300 MG, Q4W
     Route: 058

REACTIONS (6)
  - Rhinorrhoea [Unknown]
  - Dry skin [Unknown]
  - Periorbital swelling [Recovering/Resolving]
  - Rash macular [Not Recovered/Not Resolved]
  - Nasopharyngitis [Unknown]
  - Dermatitis atopic [Unknown]
